FAERS Safety Report 5307847-8 (Version None)
Quarter: 2007Q2

REPORT INFORMATION
  Report Type: 
  Country: None (occurrence: None)
  Receive Date: 20070419
  Receipt Date: 20070411
  Transmission Date: 20071010
  Serious: No
  Sender: FDA-Public Use
  Company Number: 2006PV026865

PATIENT
  Age: 67 Year
  Sex: Female

DRUGS (12)
  1. BYETTA [Suspect]
     Indication: DIABETES MELLITUS NON-INSULIN-DEPENDENT
     Dosage: SEE IMAGE
     Route: 058
     Dates: start: 20050101, end: 20050101
  2. BYETTA [Suspect]
     Indication: DIABETES MELLITUS NON-INSULIN-DEPENDENT
     Dosage: SEE IMAGE
     Route: 058
     Dates: start: 20050809, end: 20060701
  3. BYETTA [Suspect]
     Indication: DIABETES MELLITUS NON-INSULIN-DEPENDENT
     Dosage: SEE IMAGE
     Route: 058
     Dates: start: 20061101, end: 20061201
  4. METFORMIN HCL [Concomitant]
  5. ACCUPRIL [Concomitant]
  6. LASIX [Concomitant]
  7. XALATAN [Concomitant]
  8. ASPIRIN [Concomitant]
  9. CALCIUM CHLORIDE [Concomitant]
  10. TOPROL-XL [Concomitant]
  11. VYTORIN [Concomitant]
  12. POTASSIUM ACETATE [Concomitant]

REACTIONS (7)
  - AORTIC STENOSIS [None]
  - BLOOD GLUCOSE INCREASED [None]
  - CONDITION AGGRAVATED [None]
  - DIARRHOEA [None]
  - DISEASE PROGRESSION [None]
  - NAUSEA [None]
  - VOMITING PROJECTILE [None]
